FAERS Safety Report 17669979 (Version 1)
Quarter: 2020Q2

REPORT INFORMATION
  Report Type: Spontaneous
  Country: US (occurrence: US)
  Receive Date: 20200414
  Receipt Date: 20200414
  Transmission Date: 20200713
  Serious: No
  Sender: FDA-Public Use
  Company Number: None

PATIENT
  Age: 57 Year
  Sex: Male
  Weight: 68.49 kg

DRUGS (1)
  1. SPIRONOLACTONE (SPIRONOLACTONE 25MG TAB) [Suspect]
     Active Substance: SPIRONOLACTONE
     Indication: CARDIAC FAILURE CONGESTIVE
     Dosage: ?          OTHER DOSE:TAKE 1 TAB;?
     Route: 048
     Dates: start: 20190801, end: 20191125

REACTIONS (4)
  - Dehydration [None]
  - Chronic kidney disease [None]
  - Hyperkalaemia [None]
  - Anaemia [None]

NARRATIVE: CASE EVENT DATE: 20191119
